FAERS Safety Report 7304390-1 (Version None)
Quarter: 2011Q1

REPORT INFORMATION
  Report Type: 
  Country: None (occurrence: None)
  Receive Date: 20110221
  Receipt Date: 20110216
  Transmission Date: 20110831
  Serious: Yes (Hospitalization)
  Sender: FDA-Public Use
  Company Number: PHHY2011US12897

PATIENT
  Age: 12 Year
  Sex: Male
  Weight: 43.991 kg

DRUGS (1)
  1. TOBI [Suspect]
     Indication: CYSTIC FIBROSIS
     Dosage: 300 MG, BID

REACTIONS (2)
  - GASTRIC DISORDER [None]
  - UPPER RESPIRATORY TRACT INFECTION [None]
